FAERS Safety Report 6233097-7 (Version None)
Quarter: 2009Q2

REPORT INFORMATION
  Report Type: 
  Country: None (occurrence: None)
  Receive Date: 20090617
  Receipt Date: 20090401
  Transmission Date: 20091009
  Serious: Yes (Hospitalization)
  Sender: FDA-Public Use
  Company Number: TR-ELI_LILLY_AND_COMPANY-TR200906002611

PATIENT
  Age: 75 Year
  Sex: Female

DRUGS (3)
  1. HUMALOG [Suspect]
     Indication: DIABETES MELLITUS
     Dosage: 14 IU, DAILY (1/D)
     Route: 058
     Dates: start: 20080319
  2. LANTUS [Concomitant]
     Indication: DIABETES MELLITUS
     Dosage: 16 IU, DAILY (1/D)
  3. CORASPIRINA [Concomitant]
     Dosage: UNK, DAILY (1/D)

REACTIONS (4)
  - IRON DEFICIENCY [None]
  - PRURITUS [None]
  - RESPIRATORY DISORDER [None]
  - SKIN BURNING SENSATION [None]
